FAERS Safety Report 7328440-1 (Version None)
Quarter: 2011Q1

REPORT INFORMATION
  Report Type: 
  Country: None (occurrence: None)
  Receive Date: 20110303
  Receipt Date: 20110217
  Transmission Date: 20110831
  Serious: No
  Sender: FDA-Public Use
  Company Number: US-ENDO PHARMACEUTICALS INC.-LISI20110002

PATIENT
  Sex: Male

DRUGS (2)
  1. LISINOPRIL [Suspect]
     Indication: HYPERTENSION
     Dosage: UNK
     Route: 048
     Dates: start: 20110101
  2. CLONIDINE HCL [Suspect]
     Indication: HYPERTENSION
     Dosage: UNK

REACTIONS (5)
  - CARDIAC DISORDER [None]
  - BLOOD PRESSURE ABNORMAL [None]
  - HYPERSOMNIA [None]
  - DRUG INEFFECTIVE [None]
  - FEELING ABNORMAL [None]
